FAERS Safety Report 20120580 (Version 2)
Quarter: 2022Q1

REPORT INFORMATION
  Report Type: Spontaneous
  Country: US (occurrence: US)
  Receive Date: 20211126
  Receipt Date: 20220224
  Transmission Date: 20220424
  Serious: No
  Sender: FDA-Public Use
  Company Number: US-SA-SAC20211118001613

PATIENT
  Age: 54 Year
  Sex: Female

DRUGS (1)
  1. DUPIXENT [Suspect]
     Active Substance: DUPILUMAB
     Dosage: 300 MG, FREQUENCY OTHER
     Route: 058
     Dates: start: 20210801

REACTIONS (6)
  - Oedema peripheral [Unknown]
  - Fluid retention [Unknown]
  - Fatigue [Unknown]
  - Mental disorder [Unknown]
  - Weight increased [Unknown]
  - Thyroid function test abnormal [Unknown]

NARRATIVE: CASE EVENT DATE: 20211108
